FAERS Safety Report 11455881 (Version 1)
Quarter: 2015Q3

REPORT INFORMATION
  Report Type: Report from Study
  Country: BR (occurrence: BR)
  Receive Date: 20150903
  Receipt Date: 20150903
  Transmission Date: 20151125
  Serious: Yes (Death, Hospitalization, Other)
  Sender: FDA-Public Use
  Company Number: PHHO2015BR009329

PATIENT
  Age: 32 Year
  Sex: Male
  Weight: 93 kg

DRUGS (6)
  1. ENOXAPARIN [Concomitant]
     Active Substance: ENOXAPARIN
     Indication: EMBOLISM
     Dosage: 100 MG, BID
     Route: 058
     Dates: start: 20150519
  2. DEXAMETHASONE. [Suspect]
     Active Substance: DEXAMETHASONE
     Dosage: 6 MG, QID
     Route: 042
     Dates: start: 20150708
  3. LDK378 [Suspect]
     Active Substance: CERITINIB
     Indication: NON-SMALL CELL LUNG CANCER
     Dosage: 750 MG, QD
     Route: 048
     Dates: start: 20141106, end: 20150612
  4. DEXAMETHASONE. [Suspect]
     Active Substance: DEXAMETHASONE
     Indication: METASTASES TO CENTRAL NERVOUS SYSTEM
     Dosage: 8 MG, QD
     Route: 042
     Dates: start: 20150612, end: 20150612
  5. DEXAMETHASONE. [Suspect]
     Active Substance: DEXAMETHASONE
     Dosage: 16 MG, QID
     Route: 042
     Dates: start: 20150613
  6. ENOXAPARIN [Concomitant]
     Active Substance: ENOXAPARIN
     Indication: PULMONARY EMBOLISM
     Dosage: 120 MG, QD
     Route: 058
     Dates: start: 20141008

REACTIONS (6)
  - Pyomyositis [Not Recovered/Not Resolved]
  - Metastases to central nervous system [Recovering/Resolving]
  - Death [Fatal]
  - Back pain [Recovering/Resolving]
  - Pulmonary embolism [Recovering/Resolving]
  - Hyperglycaemia [Recovering/Resolving]

NARRATIVE: CASE EVENT DATE: 20150518
